FAERS Safety Report 23047169 (Version 1)
Quarter: 2023Q4

REPORT INFORMATION
  Report Type: Report from Study
  Country: MX (occurrence: MX)
  Receive Date: 20231009
  Receipt Date: 20231009
  Transmission Date: 20240110
  Serious: Yes (Other)
  Sender: FDA-Public Use
  Company Number: MX-ABBVIE-5441564

PATIENT
  Sex: Male
  Weight: 69 kg

DRUGS (1)
  1. HUMIRA [Suspect]
     Active Substance: ADALIMUMAB
     Indication: Ankylosing spondylitis
     Route: 058
     Dates: start: 20210226, end: 202309

REACTIONS (3)
  - Renal failure [Not Recovered/Not Resolved]
  - Dermatitis [Not Recovered/Not Resolved]
  - Tuberculin test positive [Unknown]
